FAERS Safety Report 19674420 (Version 2)
Quarter: 2021Q3

REPORT INFORMATION
  Report Type: Spontaneous
  Country: ES (occurrence: ES)
  Receive Date: 20210809
  Receipt Date: 20210929
  Transmission Date: 20211014
  Serious: Yes (Other)
  Sender: FDA-Public Use
  Company Number: ES-AUROBINDO-AUR-APL-2021-033785

PATIENT
  Sex: Female
  Weight: 60 kg

DRUGS (11)
  1. LORAZEPAM. [Concomitant]
     Active Substance: LORAZEPAM
     Indication: INSOMNIA
     Dosage: UNK
     Route: 048
     Dates: start: 20200817
  2. HYDROXYCHLOROQUINE [Concomitant]
     Active Substance: HYDROXYCHLOROQUINE
     Indication: SYSTEMIC LUPUS ERYTHEMATOSUS
     Dosage: UNK
     Route: 048
     Dates: start: 20140522
  3. SILDENAFIL FILM?COATED TABLET [Suspect]
     Active Substance: SILDENAFIL
     Dosage: 120 MILLIGRAM, ONCE A DAY
     Route: 048
     Dates: start: 20210512
  4. PILOCARPINE. [Concomitant]
     Active Substance: PILOCARPINE
     Indication: SJOGREN^S SYNDROME
     Dosage: UNK
     Route: 042
     Dates: start: 20131129
  5. URSODEOXYCHOLIC ACID [Concomitant]
     Active Substance: URSODIOL
     Indication: BILIARY CIRRHOSIS
     Dosage: UNK
     Route: 048
     Dates: start: 20140922
  6. IVABRADINE [Concomitant]
     Active Substance: IVABRADINE
     Indication: PALPITATIONS
     Dosage: UNK
     Route: 048
     Dates: start: 20181112
  7. SILDENAFIL FILM?COATED TABLET [Suspect]
     Active Substance: SILDENAFIL
     Indication: PRODUCT USED FOR UNKNOWN INDICATION
     Dosage: 120 MILLIGRAM, ONCE A DAY
     Route: 048
     Dates: start: 20210119, end: 20210428
  8. SILDENAFIL FILM?COATED TABLET [Suspect]
     Active Substance: SILDENAFIL
     Indication: PULMONARY ARTERIAL HYPERTENSION
     Dosage: 180 MILLIGRAM, ONCE A DAY
     Route: 048
     Dates: start: 20210429, end: 20210511
  9. CALCIUM CARBONATE;CHOLECALCIFEROL;SODIUM [Concomitant]
     Indication: OSTEOPOROSIS
     Dosage: UNK
     Route: 048
     Dates: start: 20200817
  10. MACITENTAN [Suspect]
     Active Substance: MACITENTAN
     Indication: PULMONARY ARTERIAL HYPERTENSION
     Dosage: 10 MILLIGRAM, ONCE A DAY
     Route: 048
     Dates: start: 20210511
  11. OMEPRAZOLE. [Concomitant]
     Active Substance: OMEPRAZOLE
     Indication: GASTROINTESTINAL DISORDER THERAPY
     Dosage: UNK
     Route: 048
     Dates: start: 20140522

REACTIONS (3)
  - Hypotension [Unknown]
  - Pulmonary arterial hypertension [Unknown]
  - Renal impairment [Unknown]

NARRATIVE: CASE EVENT DATE: 20210428
